FAERS Safety Report 9370157 (Version 5)
Quarter: 2013Q4

REPORT INFORMATION
  Report Type: Spontaneous
  Country: US (occurrence: None)
  Receive Date: 20130624
  Receipt Date: 20131017
  Transmission Date: 20140711
  Serious: Yes (Other)
  Sender: FDA-Public Use
  Company Number: ACO_29548_2012

PATIENT
  Age: 49 Year
  Sex: Female
  Weight: 67.1 kg

DRUGS (5)
  1. AMPYRA (DALFAMPRIDINE) TABLET, 10MG [Suspect]
     Indication: GAIT DISTURBANCE
     Route: 048
     Dates: start: 20110415
  2. AVONEX (INTERFERON BETA-1A) [Concomitant]
  3. INTERFERON (INTERFERON ALFA-2B) [Concomitant]
  4. BACLOFEN (BACLOFEN) [Concomitant]
  5. MODAFINIL (MODAFINIL) [Concomitant]

REACTIONS (9)
  - Clavicle fracture [None]
  - Wrist fracture [None]
  - Foot fracture [None]
  - Fall [None]
  - Laceration [None]
  - Joint injury [None]
  - Radial nerve injury [None]
  - Accident at work [None]
  - Burning sensation [None]
